FAERS Safety Report 7898056-7 (Version None)
Quarter: 2011Q4

REPORT INFORMATION
  Report Type: 
  Country: None (occurrence: None)
  Receive Date: 20111103
  Receipt Date: 20111028
  Transmission Date: 20120403
  Serious: Yes (Death)
  Sender: FDA-Public Use
  Company Number: 1000024840

PATIENT
  Age: 71 Year
  Sex: Male
  Weight: 60 kg

DRUGS (12)
  1. THEOPHYLLINE [Concomitant]
  2. ALENDRON (ALENDRONATE SODIUM) (ALENDRONATE SODIUM) [Concomitant]
  3. SPIRO ( SPIRONOLACTONE ) ( SPIRONOLACTONE ) [Concomitant]
  4. SYMBICORT (BUDESONIDE, FORMOTEROL FUMARATE)(BUDESONIDE, FORMOTEROL FUM [Concomitant]
  5. BERODUAL (FENOTEROL, IPRATROPIUM BROMIDE)(FENOTEROL, IPRATROPIUM BROMI [Concomitant]
  6. NEBILET (NEBIVOLOL HYDROCHLORIDE) (NEBIVOLOL HYDROCHLORIDE) [Concomitant]
  7. FUROBETA (FUROSEMIDE)(40 MILLIGRAM)(FUROSEMIDE) [Concomitant]
  8. SPIRIVA(TIOTROPIUM BROMIDE) ( TIOTROPIUM BROMIDE) [Concomitant]
  9. MARCUMAR ( PHENPROCOUMON) ( PHENPROCOUMON) [Concomitant]
  10. ROFLUMILAST (ROFLUMILAST) (TABLETS) [Suspect]
     Indication: CHRONIC OBSTRUCTIVE PULMONARY DISEASE
     Dosage: 500 MCG (500 MCG, 1  IN 1 D),ORAL
     Route: 048
     Dates: start: 20110310, end: 20110331
  11. PREDNISOLON (PREDNISOLONE) (10 MILLIGRAM) (PREDNISOLONE) [Concomitant]
  12. OXYGEN (OXYGEN) (OXYGEN) [Concomitant]

REACTIONS (5)
  - PNEUMONIA ESCHERICHIA [None]
  - VOMITING [None]
  - RESPIRATORY DISTRESS [None]
  - RENAL FAILURE [None]
  - PNEUMONIA KLEBSIELLA [None]
